FAERS Safety Report 18229396 (Version 1)
Quarter: 2020Q3

REPORT INFORMATION
  Report Type: Spontaneous
  Country: TR (occurrence: TR)
  Receive Date: 20200903
  Receipt Date: 20200903
  Transmission Date: 20201103
  Serious: Yes (Life-Threatening)
  Sender: FDA-Public Use
  Company Number: NVSC2020TR242539

PATIENT
  Age: 26 Year
  Sex: Male

DRUGS (1)
  1. PANTOPRAZOLE [Suspect]
     Active Substance: PANTOPRAZOLE
     Indication: MELAENA
     Dosage: 320 MG, Q24H
     Route: 041

REACTIONS (3)
  - Product use in unapproved indication [Unknown]
  - Septic shock [Recovered/Resolved]
  - Pericardial effusion [Recovered/Resolved]
